FAERS Safety Report 9339305 (Version 2)
Quarter: 2013Q3

REPORT INFORMATION
  Report Type: Report from Study
  Country: JP (occurrence: JP)
  Receive Date: 20130610
  Receipt Date: 20130731
  Transmission Date: 20140515
  Serious: Yes (Other)
  Sender: FDA-Public Use
  Company Number: PHHY2013JP057939

PATIENT
  Age: 32 Year
  Sex: Female

DRUGS (3)
  1. LEPONEX / CLOZARIL [Suspect]
     Indication: SCHIZOPHRENIA
     Dosage: 12.5 MG, UNK
     Route: 048
     Dates: start: 20130530, end: 20130601
  2. LEPONEX / CLOZARIL [Suspect]
     Dosage: UNK UKN, UNK
     Dates: start: 20130602, end: 20130603
  3. LEPONEX / CLOZARIL [Suspect]
     Dosage: UNK UKN, UNK
     Route: 048
     Dates: start: 20130605

REACTIONS (1)
  - Appendicitis [Recovered/Resolved]
